FAERS Safety Report 6450279-X (Version None)
Quarter: 2009Q4

REPORT INFORMATION
  Report Type: 
  Country: None (occurrence: None)
  Receive Date: 20091123
  Receipt Date: 20091113
  Transmission Date: 20100525
  Serious: Yes (Hospitalization)
  Sender: FDA-Public Use
  Company Number: US-ROCHE-668919

PATIENT
  Sex: Male

DRUGS (2)
  1. PEGASYS [Suspect]
     Indication: HEPATITIS C
     Dosage: FORM:: PFS
     Route: 065
     Dates: start: 20090724
  2. RIBAVIRIN [Suspect]
     Indication: HEPATITIS C
     Dosage: DIVIDED DOSES
     Route: 065
     Dates: start: 20090724

REACTIONS (7)
  - ABDOMINAL DISTENSION [None]
  - BACK PAIN [None]
  - COLD SWEAT [None]
  - ERYTHEMA [None]
  - FEELING HOT [None]
  - MASS [None]
  - URTICARIA [None]
